FAERS Safety Report 16398519 (Version 1)
Quarter: 2019Q2

REPORT INFORMATION
  Report Type: Spontaneous
  Country: FR (occurrence: FR)
  Receive Date: 20190606
  Receipt Date: 20190606
  Transmission Date: 20190711
  Serious: Yes (Other)
  Sender: FDA-Public Use
  Company Number: FR-ROCHE-2327492

PATIENT
  Age: 82 Year
  Sex: Female
  Weight: 55 kg

DRUGS (7)
  1. ROACTEMRA [Suspect]
     Active Substance: TOCILIZUMAB
     Indication: RHEUMATOID ARTHRITIS
     Route: 065
  2. ENBREL [Suspect]
     Active Substance: ETANERCEPT
     Indication: RHEUMATOID ARTHRITIS
     Route: 058
  3. REMICADE [Suspect]
     Active Substance: INFLIXIMAB
     Indication: RHEUMATOID ARTHRITIS
     Route: 065
  4. ARAVA [Suspect]
     Active Substance: LEFLUNOMIDE
     Indication: RHEUMATOID ARTHRITIS
     Dosage: MOST RECENT DOSE RECEIVED ON JUN/2010
     Route: 065
     Dates: start: 2008
  5. OLUMIANT [Suspect]
     Active Substance: BARICITINIB
     Indication: RHEUMATOID ARTHRITIS
     Dosage: MOST RECENT DOSE WAS RECEIVED ON /FEB/2019
     Route: 065
     Dates: start: 201710
  6. ORENCIA [Suspect]
     Active Substance: ABATACEPT
     Indication: RHEUMATOID ARTHRITIS
     Dosage: MOST RECENT DOSE WAS RECEIVED ON OCT/2017
     Route: 065
     Dates: start: 201501
  7. METHOTREXATE. [Suspect]
     Active Substance: METHOTREXATE
     Indication: RHEUMATOID ARTHRITIS
     Dosage: REPORTED AS METHOTREXATE MYLAN?MOST RECENT DOSE WAS RECEIVED ON 2008
     Route: 048
     Dates: start: 1989

REACTIONS (2)
  - Ovarian adenoma [Not Recovered/Not Resolved]
  - Renal neoplasm [Not Recovered/Not Resolved]

NARRATIVE: CASE EVENT DATE: 201903
